FAERS Safety Report 6356467 (Version 5)
Quarter: 2018Q4

REPORT INFORMATION
  Report Type: Spontaneous
  Country: JP (occurrence: JP)
  Receive Date: 20070713
  Receipt Date: 20181114
  Transmission Date: 20190205
  Serious: Yes (Hospitalization)
  Sender: FDA-Public Use
  Company Number: PHBS2007JP11512

PATIENT
  Age: 67 Year
  Sex: Female

DRUGS (2)
  1. GLIVEC [Suspect]
     Active Substance: IMATINIB MESYLATE
     Indication: GASTROINTESTINAL STROMAL TUMOUR
     Dosage: 400 MG, UNK
     Route: 048
     Dates: start: 20060916, end: 20061110
  2. GLIVEC [Suspect]
     Active Substance: IMATINIB MESYLATE
     Dosage: 400 MG, UNK
     Route: 048
     Dates: end: 200701

REACTIONS (6)
  - Oesophagoenterostomy [Recovering/Resolving]
  - Rash [Recovering/Resolving]
  - Skin exfoliation [Recovered/Resolved]
  - Oesophagectomy [Recovering/Resolving]
  - Eyelid oedema [Recovered/Resolved]
  - Oedema [Recovered/Resolved]

NARRATIVE: CASE EVENT DATE: 20061025
